FAERS Safety Report 8292308-7 (Version None)
Quarter: 2012Q2

REPORT INFORMATION
  Report Type: 
  Country: None (occurrence: None)
  Receive Date: 20120417
  Receipt Date: 20120411
  Transmission Date: 20120825
  Serious: Yes (Hospitalization, Other)
  Sender: FDA-Public Use
  Company Number: US-ELI_LILLY_AND_COMPANY-US201004003435

PATIENT
  Sex: Female
  Weight: 75.283 kg

DRUGS (5)
  1. FORTEO [Suspect]
     Dosage: 20 UG, QD
     Route: 058
  2. FORTEO [Suspect]
     Dosage: 20 UG, QD
     Route: 058
  3. FORTEO [Suspect]
     Dosage: 20 UG, QD
     Route: 058
     Dates: start: 20110524
  4. FORTEO [Suspect]
     Indication: OSTEOPOROSIS
     Dosage: 20 UG, QD
     Route: 058
     Dates: start: 20100101
  5. FORTEO [Suspect]
     Dosage: 20 UG, QD
     Route: 058

REACTIONS (13)
  - HIP FRACTURE [None]
  - SPINAL COLUMN STENOSIS [None]
  - UNDERDOSE [None]
  - SPINAL FRACTURE [None]
  - INJECTION SITE HAEMATOMA [None]
  - PATELLA FRACTURE [None]
  - MEMORY IMPAIRMENT [None]
  - WRIST FRACTURE [None]
  - PAIN [None]
  - DEMENTIA ALZHEIMER'S TYPE [None]
  - FALL [None]
  - UPPER LIMB FRACTURE [None]
  - CATARACT [None]
